FAERS Safety Report 19078210 (Version 1)
Quarter: 2021Q1

REPORT INFORMATION
  Report Type: Spontaneous
  Country: US (occurrence: US)
  Receive Date: 20210331
  Receipt Date: 20210331
  Transmission Date: 20210420
  Serious: Yes (Death, Hospitalization)
  Sender: FDA-Public Use
  Company Number: None

PATIENT
  Age: 75 Year
  Sex: Female
  Weight: 90.8 kg

DRUGS (2)
  1. IMDEVIMAB 120 MG/ML [Suspect]
     Active Substance: IMDEVIMAB
  2. CASIRIVIMAB 120MG/ML [Suspect]
     Active Substance: CASIRIVIMAB
     Indication: COVID-19
     Route: 042
     Dates: start: 20210114

REACTIONS (2)
  - Dyspnoea exertional [None]
  - Death [None]

NARRATIVE: CASE EVENT DATE: 20210118
